FAERS Safety Report 22715711 (Version 12)
Quarter: 2024Q2

REPORT INFORMATION
  Report Type: Spontaneous
  Country: CA (occurrence: CA)
  Receive Date: 20230718
  Receipt Date: 20240425
  Transmission Date: 20240715
  Serious: Yes (Disabling, Other)
  Sender: FDA-Public Use
  Company Number: CA-SA-2021SA409032

PATIENT
  Age: 7 Year
  Sex: Male
  Weight: 28 kg

DRUGS (1)
  1. ALLEGRA [Suspect]
     Active Substance: FEXOFENADINE HYDROCHLORIDE
     Indication: Product used for unknown indication
     Dosage: 1 MG
     Route: 065

REACTIONS (42)
  - Blood pressure decreased [Unknown]
  - Blood pressure systolic increased [Unknown]
  - Intellectual disability [Recovered/Resolved]
  - Body temperature decreased [Unknown]
  - Respiratory tract infection viral [Recovered/Resolved]
  - Choking [Unknown]
  - Acne [Recovering/Resolving]
  - Toothache [Recovered/Resolved]
  - Somnolence [Not Recovered/Not Resolved]
  - Weight increased [Unknown]
  - Heart rate decreased [Unknown]
  - Agitation [Unknown]
  - Respiratory rate decreased [Unknown]
  - Blood pressure increased [Unknown]
  - Poor venous access [Recovering/Resolving]
  - Infusion related reaction [Unknown]
  - Patient uncooperative [Recovered/Resolved]
  - Tooth injury [Recovered/Resolved]
  - Wrong technique in product usage process [Unknown]
  - Upper respiratory tract infection [Not Recovered/Not Resolved]
  - Productive cough [Not Recovered/Not Resolved]
  - Rhinorrhoea [Not Recovered/Not Resolved]
  - Weight decreased [Unknown]
  - Pruritus [Recovering/Resolving]
  - Heart rate increased [Not Recovered/Not Resolved]
  - Fatigue [Unknown]
  - Poor quality sleep [Unknown]
  - Tremor [Unknown]
  - Salivary hypersecretion [Unknown]
  - Vomiting [Unknown]
  - Product use complaint [Unknown]
  - Inappropriate schedule of product administration [Unknown]
  - Balance disorder [Not Recovered/Not Resolved]
  - Restlessness [Recovered/Resolved]
  - Insomnia [Not Recovered/Not Resolved]
  - Dry skin [Not Recovered/Not Resolved]
  - Influenza [Not Recovered/Not Resolved]
  - Visual impairment [Unknown]
  - Gait disturbance [Unknown]
  - Dizziness [Unknown]
  - COVID-19 [Recovered/Resolved]
  - Sleep disorder [Not Recovered/Not Resolved]

NARRATIVE: CASE EVENT DATE: 20200101
